FAERS Safety Report 7386959-1 (Version None)
Quarter: 2011Q1

REPORT INFORMATION
  Report Type: 
  Country: None (occurrence: None)
  Receive Date: 20110331
  Receipt Date: 20110322
  Transmission Date: 20110831
  Serious: Yes (Hospitalization)
  Sender: FDA-Public Use
  Company Number: GB-MPIJNJ-2010-01739

PATIENT

DRUGS (20)
  1. PREDNISONE [Suspect]
     Indication: MANTLE CELL LYMPHOMA
     Dosage: 100 MG, UNK
     Route: 048
     Dates: start: 20090911
  2. CHLORPHENAMINE [Concomitant]
     Indication: PROPHYLAXIS
     Dosage: 4 MG, UNK
     Route: 048
     Dates: start: 20090911
  3. TEMAZEPAM [Concomitant]
     Dosage: 20 MG, UNK
     Route: 048
     Dates: start: 20090911
  4. VINCRISTINE [Suspect]
     Indication: MANTLE CELL LYMPHOMA
     Dosage: 2 MG, UNK
     Route: 042
     Dates: start: 20090911
  5. MORPHINE SULFATE [Concomitant]
     Dosage: 10 UNK, UNK
     Dates: start: 20090911
  6. DIAZEPAM [Concomitant]
     Indication: ANXIETY
     Dosage: 5 MG, UNK
     Route: 048
     Dates: start: 20090918
  7. CYCLIZINE [Concomitant]
     Indication: PROPHYLAXIS
     Dosage: 50 MG, UNK
     Route: 048
     Dates: start: 20090911
  8. FUROSEMIDE [Concomitant]
     Indication: OEDEMA PERIPHERAL
     Dosage: 20 MG, UNK
     Route: 048
     Dates: start: 20091127
  9. VELCADE [Suspect]
     Indication: MANTLE CELL LYMPHOMA
     Dosage: 2.9 MG, UNK
     Route: 042
     Dates: start: 20090911
  10. ALLOPURINOL [Concomitant]
     Indication: PROPHYLAXIS
     Dosage: 300 MG, UNK
     Route: 048
     Dates: start: 20090911
  11. AZITHROMYCIN [Concomitant]
     Dosage: 500 MG, UNK
     Route: 048
     Dates: start: 20090928
  12. DOXORUBICIN [Suspect]
     Indication: MANTLE CELL LYMPHOMA
     Dosage: 92 MG, UNK
     Route: 042
     Dates: start: 20090911
  13. CYCLOPHOSPHAMIDE [Suspect]
     Indication: MANTLE CELL LYMPHOMA
     Dosage: 1380 MG, UNK
     Route: 042
     Dates: start: 20090911
  14. DICLOFENAC DIETHYLAMINE [Concomitant]
     Indication: NECK PAIN
     Dosage: UNK
     Route: 061
     Dates: start: 20091027
  15. MOVICOL                            /01053601/ [Concomitant]
     Indication: CONSTIPATION
     Dosage: 13.8 G, UNK
     Route: 048
     Dates: start: 20091021
  16. ACYCLOVIR [Concomitant]
     Indication: PROPHYLAXIS
     Dosage: 200 MG, UNK
     Route: 048
     Dates: start: 20090909
  17. LANSOPRAZOLE [Concomitant]
     Indication: PROPHYLAXIS
     Dosage: 30 MG, UNK
     Route: 048
     Dates: start: 20090911
  18. PARACETAMOL [Concomitant]
     Indication: PAIN
     Dosage: 1 G, UNK
     Dates: start: 20090911
  19. IBUPROFEN [Concomitant]
     Indication: BONE PAIN
     Dosage: 400 MG, UNK
     Route: 048
     Dates: start: 20091027
  20. MORPHINE SULFATE [Concomitant]
     Indication: PAIN
     Dosage: 50 MG, UNK
     Route: 048
     Dates: start: 20090911

REACTIONS (6)
  - POLLAKIURIA [None]
  - URINARY TRACT INFECTION [None]
  - PNEUMONIA PRIMARY ATYPICAL [None]
  - HAEMATURIA [None]
  - DYSURIA [None]
  - INFECTION [None]
